FAERS Safety Report 17874000 (Version 1)
Quarter: 2020Q2

REPORT INFORMATION
  Report Type: Report from Study
  Country: US (occurrence: US)
  Receive Date: 20200609
  Receipt Date: 20200609
  Transmission Date: 20200714
  Serious: Yes (Other)
  Sender: FDA-Public Use
  Company Number: US-TEVA-2020-US-1245356

PATIENT
  Sex: Female

DRUGS (2)
  1. ESTRADIOL. [Suspect]
     Active Substance: ESTRADIOL
     Indication: MENOPAUSAL SYMPTOMS
  2. ESTRADIOL. [Suspect]
     Active Substance: ESTRADIOL
     Indication: GENITOURINARY SYMPTOM
     Dosage: RECEIVED THRICE IN A WEEK
     Route: 067

REACTIONS (1)
  - Hormone receptor positive breast cancer [Unknown]
